FAERS Safety Report 5430806-1 (Version None)
Quarter: 2007Q3

REPORT INFORMATION
  Report Type: 
  Country: None (occurrence: None)
  Receive Date: 20070830
  Receipt Date: 20061129
  Transmission Date: 20080115
  Serious: Yes (Other)
  Sender: FDA-Public Use
  Company Number: A0629448A

PATIENT
  Age: 25 Year
  Sex: Female

DRUGS (4)
  1. WELLBUTRIN [Suspect]
     Indication: DEPRESSION
     Dosage: 300MG PER DAY
     Route: 048
     Dates: start: 20060301, end: 20061110
  2. ORTHO TRI-CYCLEN [Concomitant]
  3. NYQUIL [Concomitant]
  4. ALCOHOL [Concomitant]

REACTIONS (1)
  - GRAND MAL CONVULSION [None]
